FAERS Safety Report 6219278-7 (Version None)
Quarter: 2009Q2

REPORT INFORMATION
  Report Type: 
  Country: None (occurrence: None)
  Receive Date: 20090609
  Receipt Date: 20090526
  Transmission Date: 20091009
  Serious: Yes (Hospitalization)
  Sender: FDA-Public Use
  Company Number: US-ELI_LILLY_AND_COMPANY-US200904006285

PATIENT
  Sex: Male
  Weight: 83.447 kg

DRUGS (5)
  1. ALIMTA [Suspect]
     Indication: NON-SMALL CELL LUNG CANCER STAGE IV
     Dosage: 500 MG/M2, UNK
     Dates: start: 20080801, end: 20090201
  2. ALIMTA [Suspect]
     Dosage: 500 MIU, UNK
     Dates: start: 20090404
  3. VITAMIN B-12 [Concomitant]
     Dosage: 1000 UG, UNK
     Route: 030
     Dates: start: 20080807
  4. FOLIC ACID [Concomitant]
     Dosage: 400 MG, DAILY (1/D)
     Route: 048
     Dates: start: 20080807
  5. CORTICOSTEROIDS [Concomitant]
     Dosage: 4 MG, 2/D DAY BEFORE, DAY OF, DAY AFTER CHEMO
     Route: 048
     Dates: start: 20090410

REACTIONS (1)
  - MYOCARDIAL INFARCTION [None]
